FAERS Safety Report 23271448 (Version 1)
Quarter: 2023Q4

REPORT INFORMATION
  Report Type: Spontaneous
  Country: SA (occurrence: SA)
  Receive Date: 20231207
  Receipt Date: 20231207
  Transmission Date: 20240109
  Serious: Yes (Hospitalization, Other)
  Sender: FDA-Public Use
  Company Number: SA-ABBVIE-5490731

PATIENT
  Age: 42 Year
  Sex: Female

DRUGS (1)
  1. BOTOX [Suspect]
     Active Substance: ONABOTULINUMTOXINA
     Indication: Product used for unknown indication
     Dosage: TIME INTERVAL: AS NECESSARY: FORM STRENGTH: 100 INTERNATIONAL UNIT
     Route: 065
     Dates: start: 20231008, end: 20231008

REACTIONS (5)
  - Paralysis [Unknown]
  - Hypoaesthesia [Unknown]
  - Pain [Unknown]
  - Facial asymmetry [Unknown]
  - Injection site mass [Unknown]

NARRATIVE: CASE EVENT DATE: 20231015
